FAERS Safety Report 11734739 (Version 1)
Quarter: 2015Q4

REPORT INFORMATION
  Report Type: Spontaneous
  Country: US (occurrence: None)
  Receive Date: 20151112
  Receipt Date: 20151112
  Transmission Date: 20160304
  Serious: No
  Sender: FDA-Public Use
  Company Number: None

PATIENT
  Age: 47 Year
  Sex: Male
  Weight: 118 kg

DRUGS (3)
  1. CHOLESTIPAL [Concomitant]
  2. XIFEIAN [Concomitant]
  3. GADAVIST [Suspect]
     Active Substance: GADOBUTROL
     Indication: NUCLEAR MAGNETIC RESONANCE IMAGING
     Dosage: ONE TIME DOSE
     Route: 042

REACTIONS (1)
  - Pruritus [None]

NARRATIVE: CASE EVENT DATE: 20151106
